FAERS Safety Report 8557008-4 (Version None)
Quarter: 2012Q3

REPORT INFORMATION
  Report Type: 
  Country: None (occurrence: None)
  Receive Date: 20120801
  Receipt Date: 20120723
  Transmission Date: 20120928
  Serious: Yes (Other)
  Sender: FDA-Public Use
  Company Number: US-JNJFOC-20120611857

PATIENT
  Sex: Male

DRUGS (3)
  1. SUBOXONE [Concomitant]
     Indication: WITHDRAWAL SYNDROME
     Dates: start: 20080101
  2. REMICADE [Suspect]
     Indication: CROHN'S DISEASE
     Route: 042
     Dates: start: 20040101
  3. IMURAN [Suspect]
     Indication: CROHN'S DISEASE
     Route: 065
     Dates: start: 20000101, end: 20080101

REACTIONS (1)
  - HODGKIN'S DISEASE [None]
